FAERS Safety Report 6891697-5 (Version None)
Quarter: 2010Q3

REPORT INFORMATION
  Report Type: 
  Country: None (occurrence: None)
  Receive Date: 20100731
  Receipt Date: 20071002
  Transmission Date: 20110219
  Serious: No
  Sender: FDA-Public Use
  Company Number: US-PFIZER INC-2007082762

PATIENT
  Sex: Female
  Weight: 66.22 kg

DRUGS (5)
  1. NEURONTIN [Suspect]
     Indication: NEUROPATHY PERIPHERAL
     Dosage: 5 EVERY 1 DAYS
     Route: 048
     Dates: start: 20070801
  2. ATENOLOL [Concomitant]
  3. NORVASC [Concomitant]
  4. LEVOTHYROXINE SODIUM [Concomitant]
  5. ATIVAN [Concomitant]

REACTIONS (5)
  - AGITATION [None]
  - DRUG INEFFECTIVE [None]
  - INSOMNIA [None]
  - MALAISE [None]
  - WEIGHT DECREASED [None]
